FAERS Safety Report 5251936-3 (Version None)
Quarter: 2007Q1

REPORT INFORMATION
  Report Type: 
  Country: None (occurrence: None)
  Receive Date: 20070223
  Receipt Date: 20070212
  Transmission Date: 20070707
  Serious: Yes (Hospitalization, Other)
  Sender: FDA-Public Use
  Company Number: 235315

PATIENT
  Age: 69 Year
  Sex: Male
  Weight: 75.7 kg

DRUGS (5)
  1. RITUXAN [Suspect]
     Indication: RHEUMATOID ARTHRITIS
     Dosage: 1 G, UNK, UNK
     Dates: start: 20061201
  2. PREDNISONE TAB [Concomitant]
  3. DIGOXIN [Concomitant]
  4. TESTOSTERONE OINTMENT (TESTOSTERONE) [Concomitant]
  5. TYLENOL (CAPLET) [Concomitant]

REACTIONS (1)
  - RENAL FAILURE [None]
